FAERS Safety Report 24729220 (Version 1)
Quarter: 2024Q4

REPORT INFORMATION
  Report Type: Report from Study
  Country: GB (occurrence: GB)
  Receive Date: 20241213
  Receipt Date: 20241213
  Transmission Date: 20250115
  Serious: Yes (Other)
  Sender: NOVARTIS
  Company Number: GB-002147023-NVSC2024GB174107

PATIENT
  Age: 66 Year
  Sex: Female

DRUGS (1)
  1. LUTETIUM OXODOTREOTIDE LU-177 [Suspect]
     Active Substance: LUTETIUM OXODOTREOTIDE LU-177
     Indication: Neuroendocrine tumour
     Dosage: 7286 MBQ ON 2ND CYCLE ON 03 JUL 2024, OTHER (8-12 WEEKLY)
     Route: 042
     Dates: start: 20240502, end: 20240703

REACTIONS (11)
  - Cachexia [Not Recovered/Not Resolved]
  - Speech disorder [Unknown]
  - Weight decreased [Not Recovered/Not Resolved]
  - Lethargy [Unknown]
  - Gait disturbance [Unknown]
  - Dyspnoea [Not Recovered/Not Resolved]
  - Fatigue [Unknown]
  - Nausea [Not Recovered/Not Resolved]
  - Dysphagia [Not Recovered/Not Resolved]
  - Asthenia [Not Recovered/Not Resolved]
  - Malaise [Unknown]

NARRATIVE: CASE EVENT DATE: 20240703
